FAERS Safety Report 15250476 (Version 2)
Quarter: 2018Q3

REPORT INFORMATION
  Report Type: Spontaneous
  Country: HR (occurrence: HR)
  Receive Date: 20180807
  Receipt Date: 20180810
  Transmission Date: 20181010
  Serious: Yes (Hospitalization)
  Sender: FDA-Public Use
  Company Number: HR-ABBVIE-18K-216-2439985-00

PATIENT
  Age: 50 Year
  Sex: Male

DRUGS (9)
  1. CONTROLOC [Concomitant]
     Active Substance: PANTOPRAZOLE SODIUM
     Indication: PRODUCT USED FOR UNKNOWN INDICATION
  2. FOLACIN [Concomitant]
     Active Substance: FOLIC ACID
     Indication: PRODUCT USED FOR UNKNOWN INDICATION
  3. CORDARONE [Concomitant]
     Active Substance: AMIODARONE HYDROCHLORIDE
     Indication: PRODUCT USED FOR UNKNOWN INDICATION
  4. HUMIRA [Suspect]
     Active Substance: ADALIMUMAB
     Indication: PSORIATIC ARTHROPATHY
     Route: 058
     Dates: start: 20170616, end: 201802
  5. HUMIRA [Suspect]
     Active Substance: ADALIMUMAB
     Indication: PSORIASIS
  6. HELEX [Concomitant]
     Active Substance: ALPRAZOLAM
     Indication: PRODUCT USED FOR UNKNOWN INDICATION
  7. METHOTREXATE. [Suspect]
     Active Substance: METHOTREXATE
     Indication: PRODUCT USED FOR UNKNOWN INDICATION
     Route: 065
     Dates: start: 201802, end: 2018
  8. ISONIAZIDE [Concomitant]
     Active Substance: ISONIAZID
     Indication: ANTIBIOTIC PROPHYLAXIS
     Dates: start: 201704, end: 201710
  9. CERSON [Concomitant]
     Active Substance: NITRAZEPAM
     Indication: PRODUCT USED FOR UNKNOWN INDICATION

REACTIONS (22)
  - Post-tussive vomiting [Unknown]
  - Night sweats [Unknown]
  - Tuberculosis [Recovering/Resolving]
  - Hypertrophy [Unknown]
  - Atrial fibrillation [Recovered/Resolved]
  - Decreased appetite [Unknown]
  - Application site erythema [Recovered/Resolved]
  - Musculoskeletal pain [Unknown]
  - Arthralgia [Unknown]
  - Pleural effusion [Recovered/Resolved]
  - Dactylitis [Unknown]
  - Injection site swelling [Recovered/Resolved]
  - Pleurisy [Recovered/Resolved]
  - Grip strength decreased [Unknown]
  - Joint range of motion decreased [Unknown]
  - Musculoskeletal stiffness [Unknown]
  - Immunodeficiency [Unknown]
  - Sacroiliitis [Unknown]
  - Atelectasis [Recovered/Resolved]
  - Hand deformity [Unknown]
  - Joint swelling [Unknown]
  - Breath sounds abnormal [Unknown]

NARRATIVE: CASE EVENT DATE: 201802
